FAERS Safety Report 8790636 (Version 1)
Quarter: 2012Q4

REPORT INFORMATION
  Report Type: Spontaneous
  Country: US (occurrence: None)
  Receive Date: 20120907
  Receipt Date: 20120907
  Transmission Date: 20130627
  Serious: Yes (Other)
  Sender: FDA-Public Use
  Company Number: 20120531

PATIENT
  Age: 60 Year
  Sex: Female
  Weight: 68 kg

DRUGS (2)
  1. VENOFER [Suspect]
     Indication: ANAEMIA
     Dosage: 400 mg in 250 ml
     Dates: start: 20120821, end: 20120821
  2. VENOFER [Suspect]
     Indication: ANAEMIA
     Dosage: 400 mg in 250 ml

REACTIONS (8)
  - Hypotension [None]
  - Transient ischaemic attack [None]
  - Heart rate decreased [None]
  - Pallor [None]
  - Disorientation [None]
  - Hypoperfusion [None]
  - Metabolic encephalopathy [None]
  - Hyponatraemia [None]
